FAERS Safety Report 7678322-0 (Version None)
Quarter: 2011Q3

REPORT INFORMATION
  Report Type: 
  Country: None (occurrence: None)
  Receive Date: 20110811
  Receipt Date: 20110728
  Transmission Date: 20111222
  Serious: Yes (Other)
  Sender: FDA-Public Use
  Company Number: PHHY2010US68978

PATIENT
  Sex: Female

DRUGS (5)
  1. GALENIC /ACETIC ACID/HYDROCORTISONE/ [Concomitant]
     Dosage: UNK UKN, UNK
  2. ALEVE [Concomitant]
     Dosage: 200 MG, PRN
  3. MULTI-VITAMIN [Concomitant]
     Dosage: UNK UKN, UNK
  4. EXTAVIA [Suspect]
     Indication: MULTIPLE SCLEROSIS
     Dosage: 0.25 MG, QOD
     Route: 058
     Dates: start: 20091211
  5. TOPRAL [Concomitant]
     Dosage: 100 MG, QD

REACTIONS (13)
  - HEADACHE [None]
  - VOMITING [None]
  - THINKING ABNORMAL [None]
  - FEELING ABNORMAL [None]
  - FATIGUE [None]
  - NAUSEA [None]
  - PAIN [None]
  - MENORRHAGIA [None]
  - MENSTRUATION IRREGULAR [None]
  - STRESS [None]
  - MIGRAINE [None]
  - DEPRESSED MOOD [None]
  - MALAISE [None]
